FAERS Safety Report 5777173-1 (Version None)
Quarter: 2008Q2

REPORT INFORMATION
  Report Type: 
  Country: None (occurrence: None)
  Receive Date: 20080618
  Receipt Date: 20080611
  Transmission Date: 20081010
  Serious: Yes (Death)
  Sender: FDA-Public Use
  Company Number: JP-AVENTIS-200811694JP

PATIENT
  Age: 51 Year
  Sex: Female
  Weight: 45.8 kg

DRUGS (6)
  1. ARAVA [Suspect]
     Indication: RHEUMATOID ARTHRITIS
     Route: 048
     Dates: start: 20040101, end: 20080526
  2. PREDNISOLONE [Concomitant]
     Indication: RHEUMATOID ARTHRITIS
     Route: 048
     Dates: start: 19840101, end: 20080601
  3. ONEALFA [Concomitant]
     Indication: OSTEOPOROSIS
     Route: 048
     Dates: end: 20080528
  4. SELBEX [Concomitant]
     Indication: GASTRITIS
     Route: 048
     Dates: end: 20080528
  5. VOLTAREN [Concomitant]
     Indication: RHEUMATOID ARTHRITIS
     Route: 054
     Dates: end: 20080601
  6. ALENDRONATE SODIUM [Concomitant]
     Indication: OSTEOPOROSIS
     Route: 048
     Dates: end: 20080601

REACTIONS (1)
  - THROMBOTIC THROMBOCYTOPENIC PURPURA [None]
